FAERS Safety Report 9932586 (Version 2)
Quarter: 2014Q1

REPORT INFORMATION
  Report Type: Spontaneous
  Country: JP (occurrence: JP)
  Receive Date: 20140228
  Receipt Date: 20140307
  Transmission Date: 20141002
  Serious: Yes (Hospitalization, Other)
  Sender: FDA-Public Use
  Company Number: JP-009507513-1402JPN013517

PATIENT
  Age: 53 Year
  Sex: Male

DRUGS (14)
  1. GLACTIV [Suspect]
     Indication: DIABETES MELLITUS
     Dosage: 12.5MG, 25 MG, 50 MG, 100 MG
     Route: 048
  2. CARBAMAZEPINE [Suspect]
     Indication: MULTIPLE SCLEROSIS
     Route: 048
  3. CARBAMAZEPINE [Suspect]
     Indication: SENSORY DISTURBANCE
  4. MAGNESIUM OXIDE [Concomitant]
  5. SULPIRIDE [Concomitant]
  6. SOLIFENACIN SUCCINATE [Concomitant]
  7. GLIMEPIRIDE [Concomitant]
  8. TAMSULOSIN HYDROCHLORIDE [Concomitant]
  9. LANSOPRAZOLE [Concomitant]
  10. BROTIZOLAM [Concomitant]
  11. WARFARIN POTASSIUM [Concomitant]
  12. PREDNISOLONE [Concomitant]
  13. SENNOSIDES [Concomitant]
  14. NITROGLYCERIN [Concomitant]

REACTIONS (6)
  - Drug reaction with eosinophilia and systemic symptoms [Unknown]
  - Rash generalised [Unknown]
  - Dermatitis exfoliative [Unknown]
  - Hepatic function abnormal [Unknown]
  - Face oedema [Unknown]
  - Cytomegalovirus test positive [Unknown]
